FAERS Safety Report 21151370 (Version 1)
Quarter: 2022Q3

REPORT INFORMATION
  Report Type: Spontaneous
  Country: US (occurrence: None)
  Receive Date: 20220730
  Receipt Date: 20220730
  Transmission Date: 20221027
  Serious: Yes (Other)
  Sender: FDA-Public Use
  Company Number: 2022A265796

PATIENT
  Sex: Male
  Weight: 55.3 kg

DRUGS (1)
  1. SEROQUEL [Suspect]
     Active Substance: QUETIAPINE FUMARATE
     Indication: Post-traumatic stress disorder
     Route: 048

REACTIONS (9)
  - Pancreatitis [Unknown]
  - Hip fracture [Unknown]
  - Pelvic fracture [Unknown]
  - Arterial occlusive disease [Unknown]
  - Myocardial infarction [Unknown]
  - Pain [Unknown]
  - Drug screen false positive [Unknown]
  - Anxiety [Unknown]
  - Peroneal nerve palsy [Unknown]
